FAERS Safety Report 23039968 (Version 1)
Quarter: 2023Q4

REPORT INFORMATION
  Report Type: Spontaneous
  Country: CA (occurrence: CA)
  Receive Date: 20231006
  Receipt Date: 20231006
  Transmission Date: 20240110
  Serious: Yes (Hospitalization, Other)
  Sender: FDA-Public Use
  Company Number: CA-FreseniusKabi-FK202315722

PATIENT
  Age: 74 Year
  Sex: Female

DRUGS (1)
  1. OXALIPLATIN [Suspect]
     Active Substance: OXALIPLATIN
     Indication: Product used for unknown indication
     Dosage: DOSAGE FORM: SOLUTION INTRAVENOUS

REACTIONS (7)
  - Blood pressure abnormal [Recovered/Resolved]
  - Dysaesthesia pharynx [Recovered/Resolved]
  - Dyspnoea [Recovered/Resolved]
  - Emotional distress [Recovered/Resolved]
  - Heart rate abnormal [Recovered/Resolved]
  - Nervousness [Recovered/Resolved]
  - Stridor [Recovered/Resolved]
